FAERS Safety Report 6431210-X (Version None)
Quarter: 2009Q4

REPORT INFORMATION
  Report Type: 
  Country: None (occurrence: None)
  Receive Date: 20091105
  Receipt Date: 20091105
  Transmission Date: 20100525
  Serious: Yes (Other)
  Sender: FDA-Public Use
  Company Number: None

PATIENT
  Age: 28 Year
  Sex: Male
  Weight: 77.1115 kg

DRUGS (1)
  1. VYVANSE [Suspect]
     Indication: ATTENTION DEFICIT/HYPERACTIVITY DISORDER
     Dosage: 40 MG ONCE DAILY PO
     Route: 048
     Dates: start: 20090501, end: 20091101

REACTIONS (7)
  - AGGRESSION [None]
  - ANGER [None]
  - CONDITION AGGRAVATED [None]
  - HOMICIDAL IDEATION [None]
  - SUICIDAL IDEATION [None]
  - TIC [None]
  - WEIGHT DECREASED [None]
